FAERS Safety Report 16249120 (Version 13)
Quarter: 2024Q1

REPORT INFORMATION
  Report Type: Other
  Country: DE (occurrence: DE)
  Receive Date: 20190429
  Receipt Date: 20240312
  Transmission Date: 20240410
  Serious: Yes (Other)
  Sender: FDA-Public Use
  Company Number: DE-ROCHE-2114383

PATIENT
  Age: 57 Year
  Sex: Female
  Weight: 67 kg

DRUGS (28)
  1. OCREVUS [Suspect]
     Active Substance: OCRELIZUMAB
     Indication: Secondary progressive multiple sclerosis
     Dosage: ONCE
     Route: 042
     Dates: start: 20180322, end: 20180322
  2. OCREVUS [Suspect]
     Active Substance: OCRELIZUMAB
     Dosage: ONCE
     Route: 042
     Dates: start: 20180405, end: 20180405
  3. OCREVUS [Suspect]
     Active Substance: OCRELIZUMAB
     Dosage: 3RD INFUSION
     Route: 042
     Dates: start: 20180920
  4. OCREVUS [Suspect]
     Active Substance: OCRELIZUMAB
     Route: 042
     Dates: start: 20190408
  5. OCREVUS [Suspect]
     Active Substance: OCRELIZUMAB
     Dosage: 5TH INFUSION
     Route: 042
     Dates: start: 20191011
  6. OCREVUS [Suspect]
     Active Substance: OCRELIZUMAB
     Dosage: DATE OF TREATMENT: 10/NOV/2020
     Route: 042
     Dates: start: 20200512
  7. OCREVUS [Suspect]
     Active Substance: OCRELIZUMAB
     Route: 042
     Dates: start: 20201110
  8. OCREVUS [Suspect]
     Active Substance: OCRELIZUMAB
     Route: 042
     Dates: start: 20210525
  9. OCREVUS [Suspect]
     Active Substance: OCRELIZUMAB
     Route: 042
     Dates: start: 20180322
  10. COMIRNATY (TOZINAMERAN) [Suspect]
     Active Substance: TOZINAMERAN
     Indication: COVID-19 immunisation
     Dosage: FIRST DOSE?SECOND DOSE ON --2021
     Route: 065
     Dates: start: 2021
  11. COMIRNATY (TOZINAMERAN) [Suspect]
     Active Substance: TOZINAMERAN
     Route: 065
  12. COMIRNATY (TOZINAMERAN) [Suspect]
     Active Substance: TOZINAMERAN
     Route: 065
     Dates: start: 202111
  13. HERBALS\TURMERIC [Concomitant]
     Active Substance: HERBALS\TURMERIC
  14. DALFAMPRIDINE [Concomitant]
     Active Substance: DALFAMPRIDINE
     Indication: Muscle spasticity
     Route: 048
     Dates: start: 2012
  15. DALFAMPRIDINE [Concomitant]
     Active Substance: DALFAMPRIDINE
     Indication: Gait disturbance
     Dosage: 1-0-1
     Route: 048
  16. IBUPROFEN [Concomitant]
     Active Substance: IBUPROFEN
  17. NABIXIMOLS [Concomitant]
     Active Substance: NABIXIMOLS
     Indication: Muscle spasticity
     Dosage: 3-5 DF
     Dates: start: 2012
  18. METOPROLOL [Concomitant]
     Active Substance: METOPROLOL
  19. METOPROLOL [Concomitant]
     Active Substance: METOPROLOL
     Route: 048
     Dates: start: 2014
  20. METOPROLOL [Concomitant]
     Active Substance: METOPROLOL
     Route: 048
  21. CHOLECALCIFEROL [Concomitant]
     Active Substance: CHOLECALCIFEROL
  22. SODIUM PROPIONATE [Concomitant]
     Active Substance: SODIUM PROPIONATE
     Route: 048
  23. CORTISONE [Concomitant]
     Active Substance: CORTISONE
  24. PREGABALIN [Concomitant]
     Active Substance: PREGABALIN
  25. BACLOFEN [Concomitant]
     Active Substance: BACLOFEN
     Indication: Muscle spasticity
     Dosage: 1-0-1
     Route: 048
     Dates: start: 2010
  26. BACLOFEN [Concomitant]
     Active Substance: BACLOFEN
     Route: 048
     Dates: start: 201704
  27. AMOXICILLIN\CLAVULANATE POTASSIUM [Concomitant]
     Active Substance: AMOXICILLIN\CLAVULANATE POTASSIUM
     Dosage: UNK, 2X/DAY
     Dates: start: 20190427, end: 20190502
  28. ZOPICLONE [Concomitant]
     Active Substance: ZOPICLONE
     Indication: Sleep disorder
     Route: 048
     Dates: start: 2012

REACTIONS (30)
  - Thrombocytosis [Recovered/Resolved]
  - COVID-19 [Recovered/Resolved]
  - Asthenia [Recovered/Resolved]
  - Haemorrhagic cyst [Recovered/Resolved]
  - C-reactive protein increased [Recovered/Resolved]
  - Headache [Recovered/Resolved]
  - Muscular weakness [Unknown]
  - Fall [Unknown]
  - Rib fracture [Recovered/Resolved]
  - Muscle tightness [Recovered/Resolved]
  - Musculoskeletal stiffness [Recovered/Resolved]
  - Lymphocyte count decreased [Not Recovered/Not Resolved]
  - Arthralgia [Recovered/Resolved]
  - Therapeutic response decreased [Recovered/Resolved]
  - Leukopenia [Unknown]
  - Myalgia [Recovered/Resolved]
  - Nasopharyngitis [Recovered/Resolved]
  - SARS-CoV-2 antibody test negative [Recovered/Resolved]
  - Monocyte count increased [Unknown]
  - Fatigue [Recovered/Resolved]
  - Influenza [Recovered/Resolved]
  - Gastrointestinal disorder [Recovered/Resolved]
  - Gait disturbance [Not Recovered/Not Resolved]
  - Motor dysfunction [Not Recovered/Not Resolved]
  - White blood cell count decreased [Not Recovered/Not Resolved]
  - Fatigue [Recovered/Resolved]
  - Increased upper airway secretion [Recovered/Resolved]
  - Dizziness [Recovered/Resolved]
  - Limb injury [Not Recovered/Not Resolved]
  - Headache [Recovered/Resolved]

NARRATIVE: CASE EVENT DATE: 20180322
